FAERS Safety Report 4836154-2 (Version None)
Quarter: 2005Q4

REPORT INFORMATION
  Report Type: 
  Country: None (occurrence: None)
  Receive Date: 20051123
  Receipt Date: 20051111
  Transmission Date: 20060501
  Serious: Yes (Death)
  Sender: FDA-Public Use
  Company Number: DE-JNJFOC-20050404453

PATIENT
  Sex: Male
  Weight: 61 kg

DRUGS (2)
  1. DURAGESIC-100 [Suspect]
     Route: 062
     Dates: end: 20050401
  2. DURAGESIC-100 [Suspect]
     Indication: DRUG USE FOR UNKNOWN INDICATION
     Route: 062
     Dates: end: 20050401

REACTIONS (17)
  - ARTERIOSCLEROSIS [None]
  - ARTERIOSCLEROSIS CORONARY ARTERY [None]
  - BACK PAIN [None]
  - BRAIN OEDEMA [None]
  - DRUG ABUSER [None]
  - DRUG TOXICITY [None]
  - EMPHYSEMA [None]
  - HEPATIC CONGESTION [None]
  - HEPATIC HAEMORRHAGE [None]
  - HYPOXIA [None]
  - PANCREAS LIPOMATOSIS [None]
  - PANCREATIC HAEMORRHAGE [None]
  - PULMONARY CONGESTION [None]
  - RENAL HAEMORRHAGE [None]
  - SPLEEN CONGESTION [None]
  - SPLENIC HAEMORRHAGE [None]
  - VENTRICULAR HYPERTROPHY [None]
